FAERS Safety Report 11806409 (Version 1)
Quarter: 2015Q4

REPORT INFORMATION
  Report Type: Spontaneous
  Country: US (occurrence: US)
  Receive Date: 20151207
  Receipt Date: 20151207
  Transmission Date: 20160305
  Serious: No
  Sender: FDA-Public Use
  Company Number: US-REGENERON PHARMACEUTICALS, INC.-2015-12814

PATIENT

DRUGS (6)
  1. EYLEA [Suspect]
     Active Substance: AFLIBERCEPT
     Dosage: UNK
     Route: 031
     Dates: start: 20150415, end: 20150415
  2. EYLEA [Suspect]
     Active Substance: AFLIBERCEPT
     Dosage: UNK
     Dates: start: 20151012, end: 20151012
  3. EYLEA [Suspect]
     Active Substance: AFLIBERCEPT
     Indication: NEOVASCULAR AGE-RELATED MACULAR DEGENERATION
     Dosage: OD
     Route: 031
     Dates: start: 2014
  4. EYLEA [Suspect]
     Active Substance: AFLIBERCEPT
     Dosage: UNK
     Route: 031
     Dates: start: 20150810, end: 20150810
  5. PRESSURE REDUCING DRUG [Suspect]
     Active Substance: UNSPECIFIED INGREDIENT
     Indication: INTRAOCULAR PRESSURE INCREASED
  6. EYLEA [Suspect]
     Active Substance: AFLIBERCEPT
     Dosage: UNK
     Route: 031
     Dates: start: 20150612, end: 20150612

REACTIONS (3)
  - Lacrimation increased [Not Recovered/Not Resolved]
  - Drug interaction [Unknown]
  - Eye irritation [Not Recovered/Not Resolved]
